FAERS Safety Report 23653209 (Version 2)
Quarter: 2024Q2

REPORT INFORMATION
  Report Type: Spontaneous
  Country: US (occurrence: US)
  Receive Date: 20240320
  Receipt Date: 20240506
  Transmission Date: 20240716
  Serious: No
  Sender: FDA-Public Use
  Company Number: US-PFIZER INC-202300026435

PATIENT
  Age: 76 Year
  Sex: Male
  Weight: 61.23 kg

DRUGS (1)
  1. VYNDAMAX [Suspect]
     Active Substance: TAFAMIDIS
     Indication: Amyloidosis
     Dosage: 61 MG, 1X/DAY
     Dates: start: 202110

REACTIONS (3)
  - Feeling abnormal [Not Recovered/Not Resolved]
  - Memory impairment [Not Recovered/Not Resolved]
  - Fatigue [Unknown]
